FAERS Safety Report 5027171-0 (Version None)
Quarter: 2006Q2

REPORT INFORMATION
  Report Type: 
  Country: None (occurrence: None)
  Receive Date: 20060501
  Receipt Date: 20060126
  Transmission Date: 20061013
  Serious: No
  Sender: FDA-Public Use
  Company Number: 2006PV007667

PATIENT
  Age: 54 Year
  Sex: Female

DRUGS (4)
  1. SMYLIN INJECTION (0.6 MG/ML) [Suspect]
     Indication: DIABETES MELLITUS NON-INSULIN-DEPENDENT
     Dosage: 120 MCG; QD; SC;  60 MCG; BID; SC;  45 MCG; BID; SC;  30 MCG; BID; SC
     Route: 058
     Dates: start: 20060112, end: 20060101
  2. SMYLIN INJECTION (0.6 MG/ML) [Suspect]
     Indication: DIABETES MELLITUS NON-INSULIN-DEPENDENT
     Dosage: 120 MCG; QD; SC;  60 MCG; BID; SC;  45 MCG; BID; SC;  30 MCG; BID; SC
     Route: 058
     Dates: start: 20060106, end: 20060109
  3. SMYLIN INJECTION (0.6 MG/ML) [Suspect]
     Indication: DIABETES MELLITUS NON-INSULIN-DEPENDENT
     Dosage: 120 MCG; QD; SC;  60 MCG; BID; SC;  45 MCG; BID; SC;  30 MCG; BID; SC
     Route: 058
     Dates: start: 20060109, end: 20060112
  4. SMYLIN INJECTION (0.6 MG/ML) [Suspect]
     Indication: DIABETES MELLITUS NON-INSULIN-DEPENDENT
     Dosage: 120 MCG; QD; SC;  60 MCG; BID; SC;  45 MCG; BID; SC;  30 MCG; BID; SC
     Route: 058
     Dates: start: 20060101, end: 20060126

REACTIONS (1)
  - INJECTION SITE PAIN [None]
